FAERS Safety Report 10939069 (Version 2)
Quarter: 2015Q2

REPORT INFORMATION
  Report Type: Spontaneous
  Country: US (occurrence: US)
  Receive Date: 20150321
  Receipt Date: 20150525
  Transmission Date: 20150821
  Serious: No
  Sender: FDA-Public Use
  Company Number: US-JNJFOC-20140801302

PATIENT
  Sex: Male
  Weight: 79.38 kg

DRUGS (2)
  1. BABY ASPIRIN [Concomitant]
     Active Substance: ASPIRIN
     Indication: CARDIOVASCULAR EVENT PROPHYLAXIS
     Route: 065
  2. STELARA [Suspect]
     Active Substance: USTEKINUMAB
     Indication: PSORIASIS
     Route: 058
     Dates: start: 201404

REACTIONS (4)
  - Joint swelling [Unknown]
  - Psoriasis [Unknown]
  - Joint injury [Unknown]
  - Accident [Recovered/Resolved]

NARRATIVE: CASE EVENT DATE: 2014
